FAERS Safety Report 8291890-3 (Version None)
Quarter: 2012Q2

REPORT INFORMATION
  Report Type: 
  Country: None (occurrence: None)
  Receive Date: 20120417
  Receipt Date: 20110714
  Transmission Date: 20120825
  Serious: No
  Sender: FDA-Public Use
  Company Number: US-ASTRAZENECA-2011SE35869

PATIENT
  Age: 76 Year
  Sex: Female

DRUGS (1)
  1. NEXIUM [Suspect]
     Route: 048

REACTIONS (10)
  - NUCHAL RIGIDITY [None]
  - POLYPECTOMY [None]
  - MYALGIA [None]
  - DEFAECATION URGENCY [None]
  - HAEMORRHOIDS [None]
  - ABDOMINAL PAIN UPPER [None]
  - POLYP [None]
  - HEPATIC CYST [None]
  - ARTHRALGIA [None]
  - RENAL CYST [None]
